FAERS Safety Report 12603976 (Version 2)
Quarter: 2016Q3

REPORT INFORMATION
  Report Type: Spontaneous
  Country: US (occurrence: US)
  Receive Date: 20160728
  Receipt Date: 20160922
  Transmission Date: 20161109
  Serious: No
  Sender: FDA-Public Use
  Company Number: US-BAYER-2016-142400

PATIENT
  Age: 67 Year
  Sex: Female

DRUGS (1)
  1. CLIMARA PRO [Suspect]
     Active Substance: ESTRADIOL\LEVONORGESTREL
     Indication: HORMONE REPLACEMENT THERAPY
     Dosage: 0.045MG/0.015MG
     Route: 062
     Dates: start: 1996

REACTIONS (4)
  - Product adhesion issue [Unknown]
  - Product physical issue [Unknown]
  - Product quality issue [None]
  - Product use issue [Unknown]
